FAERS Safety Report 25094301 (Version 2)
Quarter: 2025Q3

REPORT INFORMATION
  Report Type: Spontaneous
  Country: US (occurrence: US)
  Receive Date: 20250319
  Receipt Date: 20250805
  Transmission Date: 20251021
  Serious: No
  Sender: BIOGEN
  Company Number: US-BIOGEN-2022BI01156346

PATIENT
  Sex: Male

DRUGS (7)
  1. VUMERITY [Suspect]
     Active Substance: DIROXIMEL FUMARATE
     Indication: Multiple sclerosis
     Dosage: TAKE 2 CAPSULES (462MG) BY MOUTH TWICE DAILY
     Route: 050
     Dates: start: 20220909
  2. DULOXETINE HYDROCHLORIDE [Concomitant]
     Active Substance: DULOXETINE HYDROCHLORIDE
     Route: 050
  3. SIMVASTATIN [Concomitant]
     Active Substance: SIMVASTATIN
     Route: 050
  4. OMEPRAZOLE [Concomitant]
     Active Substance: OMEPRAZOLE
     Route: 050
  5. TRIAMTERENE [Concomitant]
     Active Substance: TRIAMTERENE
     Route: 050
  6. LISINOPRIL [Concomitant]
     Active Substance: LISINOPRIL
     Route: 050
  7. VITAMIN C [Concomitant]
     Active Substance: ASCORBIC ACID
     Route: 050

REACTIONS (3)
  - Erectile dysfunction [Not Recovered/Not Resolved]
  - Memory impairment [Unknown]
  - Flushing [Recovered/Resolved]
